FAERS Safety Report 15918993 (Version 2)
Quarter: 2019Q1

REPORT INFORMATION
  Report Type: Spontaneous
  Country: US (occurrence: US)
  Receive Date: 20190205
  Receipt Date: 20190205
  Transmission Date: 20190417
  Serious: No
  Sender: FDA-Public Use
  Company Number: US-ALLERGAN-1804579US

PATIENT

DRUGS (2)
  1. RETINOIC ACID [Concomitant]
     Active Substance: TRETINOIN
     Dosage: UNK
     Route: 065
  2. URSODEOXYCHOLIC ACID - BP [Suspect]
     Active Substance: URSODIOL
     Indication: PRODUCT USED FOR UNKNOWN INDICATION
     Dosage: UNK
     Route: 065

REACTIONS (3)
  - Therapeutic response decreased [Unknown]
  - Off label use [Unknown]
  - Blood alkaline phosphatase increased [Unknown]
